FAERS Safety Report 12810936 (Version 1)
Quarter: 2016Q4

REPORT INFORMATION
  Report Type: Spontaneous
  Country: US (occurrence: US)
  Receive Date: 20161005
  Receipt Date: 20161005
  Transmission Date: 20170207
  Serious: No
  Sender: FDA-Public Use
  Company Number: None

PATIENT
  Age: 62 Year
  Sex: Male
  Weight: 71.28 kg

DRUGS (9)
  1. CLONAZEPAN [Concomitant]
     Active Substance: CLONAZEPAM
  2. BENAZEPRIL [Concomitant]
     Active Substance: BENAZEPRIL HYDROCHLORIDE
  3. OXYCODONE [Concomitant]
     Active Substance: OXYCODONE
  4. CLOPIDOGREL BISULFATE 75MG TAB AREO/ GENERIC FOR PLAVIX 75MG [Suspect]
     Active Substance: CLOPIDOGREL BISULFATE
     Indication: PROPHYLAXIS
     Dosage: 75MG 90 PILLS 1 DAILY MOUTH
     Route: 048
     Dates: start: 20160914, end: 20160921
  5. SAW PALMETTO [Concomitant]
     Active Substance: SAW PALMETTO
  6. ASPIRIN. [Concomitant]
     Active Substance: ASPIRIN
  7. GABAPENTIN. [Concomitant]
     Active Substance: GABAPENTIN
  8. CLOPIDOGREL BISULFATE 75MG TAB AREO/ GENERIC FOR PLAVIX 75MG [Suspect]
     Active Substance: CLOPIDOGREL BISULFATE
     Indication: SHUNT THROMBOSIS
     Dosage: 75MG 90 PILLS 1 DAILY MOUTH
     Route: 048
     Dates: start: 20160914, end: 20160921
  9. METHADONE [Concomitant]
     Active Substance: METHADONE HYDROCHLORIDE

REACTIONS (2)
  - Pruritus [None]
  - Rash [None]

NARRATIVE: CASE EVENT DATE: 20160920
